FAERS Safety Report 7927140-4 (Version None)
Quarter: 2011Q4

REPORT INFORMATION
  Report Type: 
  Country: None (occurrence: None)
  Receive Date: 20111116
  Receipt Date: 20111102
  Transmission Date: 20120403
  Serious: Yes (Hospitalization)
  Sender: FDA-Public Use
  Company Number: DSM-2011-01012

PATIENT
  Age: 50 Year
  Sex: Male

DRUGS (8)
  1. CAPENON (OLMESARTAN MEDOXOMIL, AMLODIPINE BESILATE) (TABLET) (OLMESART [Suspect]
     Indication: HYPERTENSION
     Dosage: 2 DOSAGE FORMS (1 DOSAGE FORMS,2 IN 1 D),ORAL
     Route: 048
  2. FUROSEMIDE [Suspect]
     Indication: HYPERTENSION
     Dosage: 40 MG (40 MG,1 IN 1 D),ORAL
     Route: 048
  3. VIDEX [Suspect]
     Indication: HIV INFECTION
     Dosage: 100 MG (100 MG,1 IN 1 D),ORAL ; ORAL
     Route: 048
     Dates: start: 20100421, end: 20110101
  4. VIDEX [Suspect]
     Indication: HIV INFECTION
     Dosage: 100 MG (100 MG,1 IN 1 D),ORAL ; ORAL
     Route: 048
     Dates: start: 20110525, end: 20110715
  5. FOSRENOL [Suspect]
     Indication: RENAL FAILURE
     Dosage: 3000 MG (1000 MG,3 IN 1 D),ORAL
     Route: 048
  6. SEVELAMER CARBONATE [Suspect]
     Indication: HYPERPHOSPHATAEMIA
     Dosage: 4.8 GM (2.4 GM,2 IN 1 D),ORAL
     Route: 048
  7. INTELENCE [Suspect]
     Indication: HIV INFECTION
     Dosage: 400 MG (400 MG,1 IN 1 D),ORAL
     Route: 048
  8. ATAZANAVIR SULFATE [Suspect]
     Indication: HIV INFECTION
     Dosage: 400 MG (400 MG,1 IN 1 D),ORAL
     Route: 048
     Dates: start: 20100101

REACTIONS (2)
  - DRUG INTERACTION [None]
  - PANCREATITIS ACUTE [None]
